FAERS Safety Report 7915594 (Version 3)
Quarter: 2013Q4

REPORT INFORMATION
  Report Type: Spontaneous
  Country: US (occurrence: US)
  Receive Date: 20110426
  Receipt Date: 20131223
  Transmission Date: 20140711
  Serious: Yes (Hospitalization, Other)
  Sender: FDA-Public Use
  Company Number: US-BAYER-2011-033470

PATIENT
  Age: 13 Year
  Sex: Female

DRUGS (3)
  1. YAZ [Suspect]
     Indication: PREMENSTRUAL SYNDROME
     Dosage: UNK
     Route: 048
     Dates: start: 200804, end: 200909
  2. MIRALAX [Concomitant]
     Indication: CONSTIPATION
     Dosage: 17 G, QD
     Dates: start: 20090325
  3. PREVACID [Concomitant]
     Indication: ABDOMINAL PAIN
     Dosage: 30 MG, QD
     Dates: start: 20090325

REACTIONS (4)
  - Gallbladder disorder [None]
  - Cholecystitis chronic [None]
  - Injury [None]
  - Pain [None]
